FAERS Safety Report 22860650 (Version 16)
Quarter: 2024Q4

REPORT INFORMATION
  Report Type: Spontaneous
  Country: CA (occurrence: CA)
  Receive Date: 20230824
  Receipt Date: 20241231
  Transmission Date: 20250114
  Serious: Yes (Death, Other)
  Sender: BRISTOL-MYERS SQUIBB COMPANY
  Company Number: CA-BRISTOL-MYERS SQUIBB COMPANY-2023-118555

PATIENT
  Age: 40 Year
  Sex: Female
  Weight: 96 kg

DRUGS (813)
  1. ORENCIA [Suspect]
     Active Substance: ABATACEPT
     Indication: Rheumatoid arthritis
     Route: 042
  2. ORENCIA [Suspect]
     Active Substance: ABATACEPT
     Route: 042
  3. ORENCIA [Suspect]
     Active Substance: ABATACEPT
     Route: 042
  4. ORENCIA [Suspect]
     Active Substance: ABATACEPT
     Route: 042
  5. ORENCIA [Suspect]
     Active Substance: ABATACEPT
     Route: 042
  6. ORENCIA [Suspect]
     Active Substance: ABATACEPT
     Route: 040
  7. TRIAMCINOLONE ACETONIDE [Suspect]
     Active Substance: TRIAMCINOLONE ACETONIDE
     Indication: Rheumatoid arthritis
     Dosage: SUSPENSION INTRA ARTICULAR DOSAGE FORM
     Route: 014
  8. TRIAMCINOLONE ACETONIDE [Suspect]
     Active Substance: TRIAMCINOLONE ACETONIDE
  9. TRIAMCINOLONE ACETONIDE [Suspect]
     Active Substance: TRIAMCINOLONE ACETONIDE
  10. TRIAMCINOLONE ACETONIDE [Suspect]
     Active Substance: TRIAMCINOLONE ACETONIDE
     Dosage: SUSPENSION INTRA ARTICULAR DOSAGE FORM
     Route: 014
  11. ORENCIA [Suspect]
     Active Substance: ABATACEPT
     Indication: Rheumatoid arthritis
     Route: 058
  12. ORENCIA [Suspect]
     Active Substance: ABATACEPT
     Route: 058
  13. ORENCIA [Suspect]
     Active Substance: ABATACEPT
     Route: 058
  14. ORENCIA [Suspect]
     Active Substance: ABATACEPT
     Route: 058
  15. ORENCIA [Suspect]
     Active Substance: ABATACEPT
     Route: 058
  16. ORENCIA [Suspect]
     Active Substance: ABATACEPT
  17. ORENCIA [Suspect]
     Active Substance: ABATACEPT
  18. ORENCIA [Suspect]
     Active Substance: ABATACEPT
  19. ORENCIA [Suspect]
     Active Substance: ABATACEPT
  20. ORENCIA [Suspect]
     Active Substance: ABATACEPT
  21. ORENCIA [Suspect]
     Active Substance: ABATACEPT
     Route: 042
  22. ORENCIA [Suspect]
     Active Substance: ABATACEPT
     Route: 058
  23. ORENCIA [Suspect]
     Active Substance: ABATACEPT
     Route: 058
  24. ORENCIA [Suspect]
     Active Substance: ABATACEPT
     Route: 058
  25. ORENCIA [Suspect]
     Active Substance: ABATACEPT
     Route: 058
  26. MAGNESIUM CARBONATE [Concomitant]
     Active Substance: MAGNESIUM CARBONATE
     Indication: Product used for unknown indication
  27. FLUTICASONE PROPIONATE [Concomitant]
     Active Substance: FLUTICASONE PROPIONATE
     Indication: Product used for unknown indication
  28. ACETAMINOPHEN [Concomitant]
     Active Substance: ACETAMINOPHEN
     Indication: Rheumatoid arthritis
  29. ACETAMINOPHEN [Concomitant]
     Active Substance: ACETAMINOPHEN
  30. ACETAMINOPHEN [Concomitant]
     Active Substance: ACETAMINOPHEN
  31. ACETAMINOPHEN [Concomitant]
     Active Substance: ACETAMINOPHEN
  32. ACETAMINOPHEN [Concomitant]
     Active Substance: ACETAMINOPHEN
  33. ACETAMINOPHEN [Concomitant]
     Active Substance: ACETAMINOPHEN
  34. ACETAMINOPHEN [Concomitant]
     Active Substance: ACETAMINOPHEN
  35. ACETAMINOPHEN [Concomitant]
     Active Substance: ACETAMINOPHEN
  36. ACETAMINOPHEN [Concomitant]
     Active Substance: ACETAMINOPHEN
  37. ACETAMINOPHEN [Concomitant]
     Active Substance: ACETAMINOPHEN
  38. ACETAMINOPHEN AND CODEINE [Concomitant]
     Active Substance: ACETAMINOPHEN\CODEINE PHOSPHATE
     Indication: Product used for unknown indication
     Dosage: ACETAMINOPHEN+COD.PHOS.ELX, USP160MG-8MG/5ML, DOSAGE FORM: ELIXIR
  39. ACTEMRA [Concomitant]
     Active Substance: TOCILIZUMAB
     Indication: Rheumatoid arthritis
     Route: 058
  40. ACTEMRA [Concomitant]
     Active Substance: TOCILIZUMAB
     Route: 042
  41. ACTEMRA [Concomitant]
     Active Substance: TOCILIZUMAB
     Route: 042
  42. ACTEMRA [Concomitant]
     Active Substance: TOCILIZUMAB
     Route: 042
  43. ACTEMRA [Concomitant]
     Active Substance: TOCILIZUMAB
     Route: 042
  44. ACTEMRA [Concomitant]
     Active Substance: TOCILIZUMAB
  45. ACTEMRA [Concomitant]
     Active Substance: TOCILIZUMAB
     Route: 042
  46. ACTEMRA [Concomitant]
     Active Substance: TOCILIZUMAB
     Route: 042
  47. ACTEMRA [Concomitant]
     Active Substance: TOCILIZUMAB
     Route: 058
  48. ACTEMRA [Concomitant]
     Active Substance: TOCILIZUMAB
     Route: 058
  49. ACTEMRA [Concomitant]
     Active Substance: TOCILIZUMAB
     Route: 058
  50. ACTEMRA [Concomitant]
     Active Substance: TOCILIZUMAB
     Route: 058
  51. ACTEMRA [Concomitant]
     Active Substance: TOCILIZUMAB
  52. ACTEMRA [Concomitant]
     Active Substance: TOCILIZUMAB
  53. ACTEMRA [Concomitant]
     Active Substance: TOCILIZUMAB
  54. ACTEMRA [Concomitant]
     Active Substance: TOCILIZUMAB
     Route: 042
  55. ACTEMRA [Concomitant]
     Active Substance: TOCILIZUMAB
     Route: 061
  56. ACTEMRA [Concomitant]
     Active Substance: TOCILIZUMAB
     Route: 058
  57. ACTEMRA [Concomitant]
     Active Substance: TOCILIZUMAB
     Route: 042
  58. ACTEMRA [Concomitant]
     Active Substance: TOCILIZUMAB
     Route: 017
  59. ACTEMRA [Concomitant]
     Active Substance: TOCILIZUMAB
     Route: 058
  60. ACTEMRA [Concomitant]
     Active Substance: TOCILIZUMAB
     Route: 042
  61. ACTEMRA [Concomitant]
     Active Substance: TOCILIZUMAB
     Route: 058
  62. ACTEMRA [Concomitant]
     Active Substance: TOCILIZUMAB
     Route: 058
  63. ACTEMRA [Concomitant]
     Active Substance: TOCILIZUMAB
     Route: 061
  64. ACTEMRA [Concomitant]
     Active Substance: TOCILIZUMAB
  65. ACTEMRA [Concomitant]
     Active Substance: TOCILIZUMAB
     Route: 058
  66. ACTEMRA [Concomitant]
     Active Substance: TOCILIZUMAB
     Route: 042
  67. ACTEMRA [Concomitant]
     Active Substance: TOCILIZUMAB
     Route: 058
  68. ACTEMRA [Concomitant]
     Active Substance: TOCILIZUMAB
     Route: 058
  69. ACTEMRA [Concomitant]
     Active Substance: TOCILIZUMAB
     Route: 058
  70. ACTEMRA [Concomitant]
     Active Substance: TOCILIZUMAB
  71. ACTEMRA [Concomitant]
     Active Substance: TOCILIZUMAB
     Route: 058
  72. ACTEMRA [Concomitant]
     Active Substance: TOCILIZUMAB
  73. ACTEMRA [Concomitant]
     Active Substance: TOCILIZUMAB
     Route: 042
  74. ACTEMRA [Concomitant]
     Active Substance: TOCILIZUMAB
     Route: 042
  75. ADALIMUMAB [Concomitant]
     Active Substance: ADALIMUMAB
     Indication: Rheumatoid arthritis
     Dosage: SOLUTION SUBCUTANEOUS
     Route: 058
  76. ADALIMUMAB [Concomitant]
     Active Substance: ADALIMUMAB
     Route: 058
  77. ADALIMUMAB [Concomitant]
     Active Substance: ADALIMUMAB
     Dosage: SOLUTION SUBCUTANEOUS
  78. ADALIMUMAB [Concomitant]
     Active Substance: ADALIMUMAB
     Dosage: SOLUTION SUBCUTANEOUS
     Route: 058
  79. AIMOVIG [Concomitant]
     Active Substance: ERENUMAB\ERENUMAB-AOOE
     Indication: Migraine
  80. AIMOVIG [Concomitant]
     Active Substance: ERENUMAB\ERENUMAB-AOOE
     Indication: Rheumatoid arthritis
  81. ALENDRONIC ACID [Concomitant]
     Active Substance: ALENDRONIC ACID
     Indication: Rheumatoid arthritis
  82. ALENDRONIC ACID [Concomitant]
     Active Substance: ALENDRONIC ACID
     Route: 048
  83. ALENDRONIC ACID [Concomitant]
     Active Substance: ALENDRONIC ACID
  84. LEFLUNOMIDE [Concomitant]
     Active Substance: LEFLUNOMIDE
     Indication: Rheumatoid arthritis
     Route: 048
  85. LEFLUNOMIDE [Concomitant]
     Active Substance: LEFLUNOMIDE
  86. LEFLUNOMIDE [Concomitant]
     Active Substance: LEFLUNOMIDE
  87. LEFLUNOMIDE [Concomitant]
     Active Substance: LEFLUNOMIDE
  88. LEFLUNOMIDE [Concomitant]
     Active Substance: LEFLUNOMIDE
     Route: 048
  89. LEFLUNOMIDE [Concomitant]
     Active Substance: LEFLUNOMIDE
  90. PREDNISONE [Concomitant]
     Active Substance: PREDNISONE
     Indication: Rheumatoid arthritis
     Route: 048
  91. PREDNISONE [Concomitant]
     Active Substance: PREDNISONE
  92. PREDNISONE [Concomitant]
     Active Substance: PREDNISONE
     Route: 048
  93. PREDNISONE [Concomitant]
     Active Substance: PREDNISONE
  94. PREDNISONE [Concomitant]
     Active Substance: PREDNISONE
     Route: 048
  95. PREDNISONE [Concomitant]
     Active Substance: PREDNISONE
     Route: 048
  96. PREDNISONE [Concomitant]
     Active Substance: PREDNISONE
  97. PREDNISONE [Concomitant]
     Active Substance: PREDNISONE
     Route: 048
  98. PREDNISONE [Concomitant]
     Active Substance: PREDNISONE
  99. PREDNISONE [Concomitant]
     Active Substance: PREDNISONE
  100. PREDNISONE [Concomitant]
     Active Substance: PREDNISONE
     Route: 048
  101. PREDNISONE [Concomitant]
     Active Substance: PREDNISONE
  102. PREDNISONE [Concomitant]
     Active Substance: PREDNISONE
     Route: 048
  103. PREDNISONE [Concomitant]
     Active Substance: PREDNISONE
     Route: 048
  104. PREDNISONE [Concomitant]
     Active Substance: PREDNISONE
  105. PREDNISONE [Concomitant]
     Active Substance: PREDNISONE
     Route: 048
  106. PREDNISONE [Concomitant]
     Active Substance: PREDNISONE
     Route: 048
  107. PREDNISONE [Concomitant]
     Active Substance: PREDNISONE
  108. PREDNISONE [Concomitant]
     Active Substance: PREDNISONE
     Route: 048
  109. APREMILAST [Concomitant]
     Active Substance: APREMILAST
     Indication: Rheumatoid arthritis
  110. APREMILAST [Concomitant]
     Active Substance: APREMILAST
  111. APREMILAST [Concomitant]
     Active Substance: APREMILAST
  112. APREMILAST [Concomitant]
     Active Substance: APREMILAST
  113. ARAVA [Concomitant]
     Active Substance: LEFLUNOMIDE
     Indication: Rheumatoid arthritis
     Route: 048
  114. ARAVA [Concomitant]
     Active Substance: LEFLUNOMIDE
     Route: 048
  115. ARAVA [Concomitant]
     Active Substance: LEFLUNOMIDE
  116. ARAVA [Concomitant]
     Active Substance: LEFLUNOMIDE
     Route: 048
  117. ARAVA [Concomitant]
     Active Substance: LEFLUNOMIDE
     Route: 048
  118. ARAVA [Concomitant]
     Active Substance: LEFLUNOMIDE
     Route: 048
  119. ARAVA [Concomitant]
     Active Substance: LEFLUNOMIDE
  120. ARAVA [Concomitant]
     Active Substance: LEFLUNOMIDE
     Route: 005
  121. ATOMOXETINE [Concomitant]
     Active Substance: ATOMOXETINE HYDROCHLORIDE
     Indication: Migraine
  122. ATOMOXETINE [Concomitant]
     Active Substance: ATOMOXETINE HYDROCHLORIDE
  123. ATOMOXETINE [Concomitant]
     Active Substance: ATOMOXETINE HYDROCHLORIDE
  124. ATOMOXETINE [Concomitant]
     Active Substance: ATOMOXETINE HYDROCHLORIDE
  125. ATOMOXETINE [Concomitant]
     Active Substance: ATOMOXETINE HYDROCHLORIDE
  126. AZATHIOPRINE SODIUM [Concomitant]
     Active Substance: AZATHIOPRINE SODIUM
     Indication: Product used for unknown indication
  127. AZATHIOPRINE SODIUM [Concomitant]
     Active Substance: AZATHIOPRINE SODIUM
  128. BERINERT [Concomitant]
     Active Substance: HUMAN C1-ESTERASE INHIBITOR
     Indication: Product used for unknown indication
  129. BERINERT [Concomitant]
     Active Substance: HUMAN C1-ESTERASE INHIBITOR
  130. BOTULINUM TOXIN TYPE A [Concomitant]
     Active Substance: BOTULINUM TOXIN TYPE A
     Indication: Product used for unknown indication
     Dosage: POWDER FOR SOLUTION
     Route: 030
  131. BOTULINUM TOXIN TYPE A [Concomitant]
     Active Substance: BOTULINUM TOXIN TYPE A
     Dosage: POWDER FOR SOLUTION
  132. BUTRANS [Concomitant]
     Active Substance: BUPRENORPHINE
     Indication: Product used for unknown indication
     Dosage: PATCH
  133. BUTRANS [Concomitant]
     Active Substance: BUPRENORPHINE
     Dosage: PATCH
  134. CANDESARTAN [Concomitant]
     Active Substance: CANDESARTAN
     Indication: Migraine
     Route: 048
  135. CANDESARTAN [Concomitant]
     Active Substance: CANDESARTAN
     Indication: Rheumatoid arthritis
     Route: 048
  136. CANDESARTAN [Concomitant]
     Active Substance: CANDESARTAN
  137. CELEBREX [Concomitant]
     Active Substance: CELECOXIB
     Indication: Rheumatoid arthritis
     Route: 048
  138. CELEBREX [Concomitant]
     Active Substance: CELECOXIB
  139. CERTOLIZUMAB PEGOL [Concomitant]
     Active Substance: CERTOLIZUMAB PEGOL
     Indication: Product used for unknown indication
     Route: 058
  140. CERTOLIZUMAB PEGOL [Concomitant]
     Active Substance: CERTOLIZUMAB PEGOL
     Route: 058
  141. CERTOLIZUMAB PEGOL [Concomitant]
     Active Substance: CERTOLIZUMAB PEGOL
  142. CERTOLIZUMAB PEGOL [Concomitant]
     Active Substance: CERTOLIZUMAB PEGOL
     Route: 016
  143. CERTOLIZUMAB PEGOL [Concomitant]
     Active Substance: CERTOLIZUMAB PEGOL
     Route: 058
  144. CERTOLIZUMAB PEGOL [Concomitant]
     Active Substance: CERTOLIZUMAB PEGOL
     Route: 058
  145. CETIRIZINE HYDROCHLORIDE [Concomitant]
     Active Substance: CETIRIZINE HYDROCHLORIDE
     Indication: Rheumatoid arthritis
  146. CETIRIZINE HYDROCHLORIDE [Concomitant]
     Active Substance: CETIRIZINE HYDROCHLORIDE
  147. CETIRIZINE HYDROCHLORIDE [Concomitant]
     Active Substance: CETIRIZINE HYDROCHLORIDE
     Route: 048
  148. CETIRIZINE HYDROCHLORIDE [Concomitant]
     Active Substance: CETIRIZINE HYDROCHLORIDE
     Route: 048
  149. CETIRIZINE HYDROCHLORIDE [Concomitant]
     Active Substance: CETIRIZINE HYDROCHLORIDE
  150. CETIRIZINE HYDROCHLORIDE [Concomitant]
     Active Substance: CETIRIZINE HYDROCHLORIDE
  151. CETIRIZINE HYDROCHLORIDE [Concomitant]
     Active Substance: CETIRIZINE HYDROCHLORIDE
  152. CETIRIZINE HYDROCHLORIDE [Concomitant]
     Active Substance: CETIRIZINE HYDROCHLORIDE
     Route: 048
  153. CETIRIZINE HYDROCHLORIDE [Concomitant]
     Active Substance: CETIRIZINE HYDROCHLORIDE
  154. CETIRIZINE HYDROCHLORIDE [Concomitant]
     Active Substance: CETIRIZINE HYDROCHLORIDE
     Route: 048
  155. CETIRIZINE HYDROCHLORIDE [Concomitant]
     Active Substance: CETIRIZINE HYDROCHLORIDE
  156. CETIRIZINE HYDROCHLORIDE [Concomitant]
     Active Substance: CETIRIZINE HYDROCHLORIDE
  157. CETIRIZINE HYDROCHLORIDE [Concomitant]
     Active Substance: CETIRIZINE HYDROCHLORIDE
  158. CETIRIZINE HYDROCHLORIDE [Concomitant]
     Active Substance: CETIRIZINE HYDROCHLORIDE
  159. CETIRIZINE HYDROCHLORIDE [Concomitant]
     Active Substance: CETIRIZINE HYDROCHLORIDE
     Route: 048
  160. CETIRIZINE HYDROCHLORIDE [Concomitant]
     Active Substance: CETIRIZINE HYDROCHLORIDE
     Route: 048
  161. CETIRIZINE HYDROCHLORIDE [Concomitant]
     Active Substance: CETIRIZINE HYDROCHLORIDE
     Route: 048
  162. CETIRIZINE HYDROCHLORIDE [Concomitant]
     Active Substance: CETIRIZINE HYDROCHLORIDE
  163. CETIRIZINE HYDROCHLORIDE [Concomitant]
     Active Substance: CETIRIZINE HYDROCHLORIDE
     Route: 048
  164. CETIRIZINE HYDROCHLORIDE [Concomitant]
     Active Substance: CETIRIZINE HYDROCHLORIDE
  165. CETIRIZINE HYDROCHLORIDE [Concomitant]
     Active Substance: CETIRIZINE HYDROCHLORIDE
  166. CETIRIZINE HYDROCHLORIDE [Concomitant]
     Active Substance: CETIRIZINE HYDROCHLORIDE
  167. CETIRIZINE HYDROCHLORIDE [Concomitant]
     Active Substance: CETIRIZINE HYDROCHLORIDE
  168. CETIRIZINE HYDROCHLORIDE [Concomitant]
     Active Substance: CETIRIZINE HYDROCHLORIDE
     Route: 048
  169. CETIRIZINE HYDROCHLORIDE [Concomitant]
     Active Substance: CETIRIZINE HYDROCHLORIDE
     Route: 048
  170. CETIRIZINE HYDROCHLORIDE [Concomitant]
     Active Substance: CETIRIZINE HYDROCHLORIDE
     Route: 048
  171. CETIRIZINE HYDROCHLORIDE [Concomitant]
     Active Substance: CETIRIZINE HYDROCHLORIDE
  172. CETIRIZINE HYDROCHLORIDE [Concomitant]
     Active Substance: CETIRIZINE HYDROCHLORIDE
     Route: 048
  173. CETIRIZINE HYDROCHLORIDE [Concomitant]
     Active Substance: CETIRIZINE HYDROCHLORIDE
     Route: 048
  174. CETIRIZINE HYDROCHLORIDE [Concomitant]
     Active Substance: CETIRIZINE HYDROCHLORIDE
  175. CETIRIZINE HYDROCHLORIDE [Concomitant]
     Active Substance: CETIRIZINE HYDROCHLORIDE
  176. CETIRIZINE HYDROCHLORIDE [Concomitant]
     Active Substance: CETIRIZINE HYDROCHLORIDE
  177. CETIRIZINE HYDROCHLORIDE [Concomitant]
     Active Substance: CETIRIZINE HYDROCHLORIDE
  178. CETIRIZINE HYDROCHLORIDE [Concomitant]
     Active Substance: CETIRIZINE HYDROCHLORIDE
     Route: 048
  179. CETIRIZINE HYDROCHLORIDE [Concomitant]
     Active Substance: CETIRIZINE HYDROCHLORIDE
  180. CETIRIZINE HYDROCHLORIDE [Concomitant]
     Active Substance: CETIRIZINE HYDROCHLORIDE
  181. CETIRIZINE HYDROCHLORIDE [Concomitant]
     Active Substance: CETIRIZINE HYDROCHLORIDE
  182. CETIRIZINE HYDROCHLORIDE [Concomitant]
     Active Substance: CETIRIZINE HYDROCHLORIDE
  183. CETIRIZINE HYDROCHLORIDE [Concomitant]
     Active Substance: CETIRIZINE HYDROCHLORIDE
     Route: 005
  184. CETIRIZINE HYDROCHLORIDE [Concomitant]
     Active Substance: CETIRIZINE HYDROCHLORIDE
  185. CIMZIA [Concomitant]
     Active Substance: CERTOLIZUMAB PEGOL
     Indication: Rheumatoid arthritis
     Route: 058
  186. CIMZIA [Concomitant]
     Active Substance: CERTOLIZUMAB PEGOL
     Indication: Psoriasis
     Route: 058
  187. CIMZIA [Concomitant]
     Active Substance: CERTOLIZUMAB PEGOL
     Route: 058
  188. CIMZIA [Concomitant]
     Active Substance: CERTOLIZUMAB PEGOL
  189. CIMZIA [Concomitant]
     Active Substance: CERTOLIZUMAB PEGOL
     Route: 058
  190. CIMZIA [Concomitant]
     Active Substance: CERTOLIZUMAB PEGOL
  191. CIMZIA [Concomitant]
     Active Substance: CERTOLIZUMAB PEGOL
  192. CIMZIA [Concomitant]
     Active Substance: CERTOLIZUMAB PEGOL
  193. CIMZIA [Concomitant]
     Active Substance: CERTOLIZUMAB PEGOL
  194. CIMZIA [Concomitant]
     Active Substance: CERTOLIZUMAB PEGOL
     Route: 058
  195. CIMZIA [Concomitant]
     Active Substance: CERTOLIZUMAB PEGOL
     Route: 005
  196. CIMZIA [Concomitant]
     Active Substance: CERTOLIZUMAB PEGOL
     Route: 058
  197. CIMZIA [Concomitant]
     Active Substance: CERTOLIZUMAB PEGOL
     Route: 058
  198. CORTISONE [Concomitant]
     Active Substance: CORTISONE
     Indication: Rheumatoid arthritis
     Route: 058
  199. CORTISONE ACETATE [Concomitant]
     Active Substance: CORTISONE ACETATE
     Indication: Rheumatoid arthritis
     Route: 048
  200. CORTISONE ACETATE [Concomitant]
     Active Substance: CORTISONE ACETATE
     Route: 061
  201. CORTISONE ACETATE [Concomitant]
     Active Substance: CORTISONE ACETATE
  202. CORTISONE ACETATE [Concomitant]
     Active Substance: CORTISONE ACETATE
     Route: 061
  203. CORTISONE ACETATE [Concomitant]
     Active Substance: CORTISONE ACETATE
     Route: 048
  204. CORTISONE ACETATE [Concomitant]
     Active Substance: CORTISONE ACETATE
  205. CORTISONE ACETATE [Concomitant]
     Active Substance: CORTISONE ACETATE
     Route: 048
  206. CORTISONE ACETATE [Concomitant]
     Active Substance: CORTISONE ACETATE
  207. CORTISONE ACETATE [Concomitant]
     Active Substance: CORTISONE ACETATE
     Route: 061
  208. COSENTYX [Concomitant]
     Active Substance: SECUKINUMAB
     Indication: Psoriatic arthropathy
  209. COSENTYX [Concomitant]
     Active Substance: SECUKINUMAB
     Indication: Rheumatoid arthritis
  210. COSENTYX [Concomitant]
     Active Substance: SECUKINUMAB
  211. COSENTYX [Concomitant]
     Active Substance: SECUKINUMAB
     Route: 005
  212. DESOXIMETASONE [Concomitant]
     Active Substance: DESOXIMETASONE
     Indication: Rheumatoid arthritis
     Route: 058
  213. DESOXIMETASONE [Concomitant]
     Active Substance: DESOXIMETASONE
     Route: 048
  214. DESOXIMETASONE [Concomitant]
     Active Substance: DESOXIMETASONE
     Route: 048
  215. DESOXIMETASONE [Concomitant]
     Active Substance: DESOXIMETASONE
     Route: 003
  216. DESOXIMETASONE [Concomitant]
     Active Substance: DESOXIMETASONE
     Route: 058
  217. DESOXIMETASONE [Concomitant]
     Active Substance: DESOXIMETASONE
     Route: 048
  218. DESOXIMETASONE [Concomitant]
     Active Substance: DESOXIMETASONE
     Route: 048
  219. DESOXIMETASONE [Concomitant]
     Active Substance: DESOXIMETASONE
     Route: 003
  220. DESOXIMETASONE [Concomitant]
     Active Substance: DESOXIMETASONE
     Route: 058
  221. DESOXIMETASONE [Concomitant]
     Active Substance: DESOXIMETASONE
     Route: 048
  222. DESOXIMETASONE [Concomitant]
     Active Substance: DESOXIMETASONE
     Route: 048
  223. DESOXIMETASONE [Concomitant]
     Active Substance: DESOXIMETASONE
     Route: 058
  224. DESOXIMETASONE [Concomitant]
     Active Substance: DESOXIMETASONE
     Route: 058
  225. DESOXIMETASONE [Concomitant]
     Active Substance: DESOXIMETASONE
     Route: 048
  226. DESOXIMETASONE [Concomitant]
     Active Substance: DESOXIMETASONE
     Route: 003
  227. DESOXIMETASONE [Concomitant]
     Active Substance: DESOXIMETASONE
     Route: 048
  228. DESOXIMETASONE [Concomitant]
     Active Substance: DESOXIMETASONE
     Route: 058
  229. DESOXIMETASONE [Concomitant]
     Active Substance: DESOXIMETASONE
  230. DESOXIMETASONE [Concomitant]
     Active Substance: DESOXIMETASONE
     Route: 058
  231. DESOXIMETASONE [Concomitant]
     Active Substance: DESOXIMETASONE
     Route: 048
  232. DESOXIMETASONE [Concomitant]
     Active Substance: DESOXIMETASONE
     Route: 048
  233. DICLOFENAC DIETHYLAMINE [Concomitant]
     Active Substance: DICLOFENAC DIETHYLAMINE
     Indication: Product used for unknown indication
  234. DICLOFENAC DIETHYLAMINE [Concomitant]
     Active Substance: DICLOFENAC DIETHYLAMINE
  235. DICLOFENAC SODIUM [Concomitant]
     Active Substance: DICLOFENAC SODIUM
     Indication: Product used for unknown indication
     Route: 058
  236. DICLOFENAC SODIUM [Concomitant]
     Active Substance: DICLOFENAC SODIUM
  237. DICLOFENAC SODIUM [Concomitant]
     Active Substance: DICLOFENAC SODIUM
  238. DOMPERIDONE MALEATE [Concomitant]
     Active Substance: DOMPERIDONE MALEATE
     Indication: Product used for unknown indication
  239. DOMPERIDONE MALEATE [Concomitant]
     Active Substance: DOMPERIDONE MALEATE
  240. DOMPERIDONE MALEATE [Concomitant]
     Active Substance: DOMPERIDONE MALEATE
  241. ENBREL [Concomitant]
     Active Substance: ETANERCEPT
     Indication: Rheumatoid arthritis
     Route: 058
  242. ENBREL [Concomitant]
     Active Substance: ETANERCEPT
  243. ENBREL [Concomitant]
     Active Substance: ETANERCEPT
     Route: 058
  244. ENBREL [Concomitant]
     Active Substance: ETANERCEPT
     Route: 058
  245. ENBREL [Concomitant]
     Active Substance: ETANERCEPT
     Route: 058
  246. ENBREL [Concomitant]
     Active Substance: ETANERCEPT
  247. ENBREL [Concomitant]
     Active Substance: ETANERCEPT
     Route: 058
  248. ENBREL [Concomitant]
     Active Substance: ETANERCEPT
  249. ENBREL [Concomitant]
     Active Substance: ETANERCEPT
     Route: 058
  250. ENBREL [Concomitant]
     Active Substance: ETANERCEPT
  251. ENBREL [Concomitant]
     Active Substance: ETANERCEPT
  252. ENBREL [Concomitant]
     Active Substance: ETANERCEPT
     Route: 058
  253. ENBREL [Concomitant]
     Active Substance: ETANERCEPT
     Route: 058
  254. ENBREL [Concomitant]
     Active Substance: ETANERCEPT
     Route: 058
  255. ENBREL [Concomitant]
     Active Substance: ETANERCEPT
     Route: 058
  256. ERELZI [Concomitant]
     Active Substance: ETANERCEPT-SZZS
     Indication: Rheumatoid arthritis
     Route: 058
  257. ERELZI [Concomitant]
     Active Substance: ETANERCEPT-SZZS
     Route: 058
  258. FLUMETHASONE [Concomitant]
     Active Substance: FLUMETHASONE
     Indication: Product used for unknown indication
  259. FLUMETHASONE [Concomitant]
     Active Substance: FLUMETHASONE
  260. FLUMETHASONE PIVALATE [Concomitant]
     Active Substance: FLUMETHASONE PIVALATE
     Indication: Product used for unknown indication
     Route: 003
  261. FLUMETHASONE PIVALATE [Concomitant]
     Active Substance: FLUMETHASONE PIVALATE
  262. FLUMETHASONE PIVALATE [Concomitant]
     Active Substance: FLUMETHASONE PIVALATE
     Route: 058
  263. FLUMETHASONE PIVALATE [Concomitant]
     Active Substance: FLUMETHASONE PIVALATE
  264. FLUMETHASONE PIVALATE [Concomitant]
     Active Substance: FLUMETHASONE PIVALATE
     Route: 048
  265. FOLIC ACID [Concomitant]
     Active Substance: FOLIC ACID
     Indication: Rheumatoid arthritis
     Route: 048
  266. FOLIC ACID [Concomitant]
     Active Substance: FOLIC ACID
     Route: 048
  267. FOLIC ACID [Concomitant]
     Active Substance: FOLIC ACID
     Route: 048
  268. FOLIC ACID [Concomitant]
     Active Substance: FOLIC ACID
     Route: 048
  269. FOLIC ACID [Concomitant]
     Active Substance: FOLIC ACID
     Route: 048
  270. FOLIC ACID [Concomitant]
     Active Substance: FOLIC ACID
     Route: 058
  271. FOLIC ACID [Concomitant]
     Active Substance: FOLIC ACID
     Route: 058
  272. FOLIC ACID [Concomitant]
     Active Substance: FOLIC ACID
     Route: 048
  273. FOLIC ACID [Concomitant]
     Active Substance: FOLIC ACID
  274. FOLIC ACID [Concomitant]
     Active Substance: FOLIC ACID
  275. FOLIC ACID [Concomitant]
     Active Substance: FOLIC ACID
     Route: 048
  276. FOLIC ACID [Concomitant]
     Active Substance: FOLIC ACID
     Route: 048
  277. FOLIC ACID [Concomitant]
     Active Substance: FOLIC ACID
  278. FOLIC ACID [Concomitant]
     Active Substance: FOLIC ACID
  279. FOLIC ACID [Concomitant]
     Active Substance: FOLIC ACID
  280. FOLIC ACID [Concomitant]
     Active Substance: FOLIC ACID
  281. FOLIC ACID [Concomitant]
     Active Substance: FOLIC ACID
  282. FOLIC ACID [Concomitant]
     Active Substance: FOLIC ACID
     Route: 048
  283. FOLIC ACID [Concomitant]
     Active Substance: FOLIC ACID
  284. FOLIC ACID [Concomitant]
     Active Substance: FOLIC ACID
     Route: 058
  285. FOLIC ACID [Concomitant]
     Active Substance: FOLIC ACID
     Route: 048
  286. FOLIC ACID [Concomitant]
     Active Substance: FOLIC ACID
  287. FOLIC ACID [Concomitant]
     Active Substance: FOLIC ACID
  288. FOSAMAX [Concomitant]
     Active Substance: ALENDRONATE SODIUM
     Indication: Rheumatoid arthritis
     Route: 048
  289. FOSAMAX [Concomitant]
     Active Substance: ALENDRONATE SODIUM
     Route: 058
  290. FOSAMAX [Concomitant]
     Active Substance: ALENDRONATE SODIUM
     Route: 016
  291. FOSAMAX [Concomitant]
     Active Substance: ALENDRONATE SODIUM
     Route: 005
  292. FOSAMAX [Concomitant]
     Active Substance: ALENDRONATE SODIUM
     Route: 048
  293. FOSAMAX [Concomitant]
     Active Substance: ALENDRONATE SODIUM
     Route: 058
  294. FOSAMAX [Concomitant]
     Active Substance: ALENDRONATE SODIUM
  295. FOSAMAX [Concomitant]
     Active Substance: ALENDRONATE SODIUM
     Route: 016
  296. GOLD SODIUM THIOMALATE [Concomitant]
     Active Substance: GOLD SODIUM THIOMALATE
     Indication: Product used for unknown indication
     Route: 030
  297. GOLD SODIUM THIOMALATE [Concomitant]
     Active Substance: GOLD SODIUM THIOMALATE
  298. GOLIMUMAB [Concomitant]
     Active Substance: GOLIMUMAB
     Indication: Rheumatoid arthritis
  299. GOLIMUMAB [Concomitant]
     Active Substance: GOLIMUMAB
     Indication: Prostatic specific antigen
     Route: 058
  300. GOLIMUMAB [Concomitant]
     Active Substance: GOLIMUMAB
  301. GOLIMUMAB [Concomitant]
     Active Substance: GOLIMUMAB
  302. GOLIMUMAB [Concomitant]
     Active Substance: GOLIMUMAB
  303. GOLIMUMAB [Concomitant]
     Active Substance: GOLIMUMAB
     Route: 058
  304. HUMIRA [Concomitant]
     Active Substance: ADALIMUMAB
     Indication: Rheumatoid arthritis
     Route: 057
  305. HUMIRA [Concomitant]
     Active Substance: ADALIMUMAB
     Dosage: SOLUTION SUBCUTANEOUS
     Route: 058
  306. HUMIRA [Concomitant]
     Active Substance: ADALIMUMAB
     Route: 058
  307. HUMIRA [Concomitant]
     Active Substance: ADALIMUMAB
     Route: 057
  308. HUMIRA [Concomitant]
     Active Substance: ADALIMUMAB
     Route: 058
  309. HUMIRA [Concomitant]
     Active Substance: ADALIMUMAB
     Route: 057
  310. HUMIRA [Concomitant]
     Active Substance: ADALIMUMAB
     Route: 058
  311. HUMIRA [Concomitant]
     Active Substance: ADALIMUMAB
  312. HUMIRA [Concomitant]
     Active Substance: ADALIMUMAB
     Route: 058
  313. HUMIRA [Concomitant]
     Active Substance: ADALIMUMAB
     Route: 058
  314. HYDROCORTISONE [Concomitant]
     Active Substance: HYDROCORTISONE
     Indication: Rheumatoid arthritis
     Route: 061
  315. HYDROCORTISONE [Concomitant]
     Active Substance: HYDROCORTISONE
     Route: 003
  316. HYDROCORTISONE [Concomitant]
     Active Substance: HYDROCORTISONE
     Route: 058
  317. HYDROXYCHLOROQUINE [Concomitant]
     Active Substance: HYDROXYCHLOROQUINE
     Indication: Rheumatoid arthritis
  318. HYDROXYCHLOROQUINE [Concomitant]
     Active Substance: HYDROXYCHLOROQUINE
     Route: 048
  319. HYDROXYCHLOROQUINE [Concomitant]
     Active Substance: HYDROXYCHLOROQUINE
  320. HYDROXYCHLOROQUINE [Concomitant]
     Active Substance: HYDROXYCHLOROQUINE
     Route: 058
  321. HYDROXYCHLOROQUINE [Concomitant]
     Active Substance: HYDROXYCHLOROQUINE
  322. HYDROXYCHLOROQUINE [Concomitant]
     Active Substance: HYDROXYCHLOROQUINE
     Route: 048
  323. HYDROXYCHLOROQUINE [Concomitant]
     Active Substance: HYDROXYCHLOROQUINE
     Route: 048
  324. HYDROXYCHLOROQUINE [Concomitant]
     Active Substance: HYDROXYCHLOROQUINE
  325. HYDROXYCHLOROQUINE [Concomitant]
     Active Substance: HYDROXYCHLOROQUINE
     Route: 048
  326. HYDROXYCHLOROQUINE [Concomitant]
     Active Substance: HYDROXYCHLOROQUINE
     Route: 058
  327. HYDROXYCHLOROQUINE [Concomitant]
     Active Substance: HYDROXYCHLOROQUINE
     Route: 058
  328. HYDROXYCHLOROQUINE [Concomitant]
     Active Substance: HYDROXYCHLOROQUINE
     Route: 048
  329. HYDROXYCHLOROQUINE [Concomitant]
     Active Substance: HYDROXYCHLOROQUINE
     Route: 048
  330. HYDROXYCHLOROQUINE [Concomitant]
     Active Substance: HYDROXYCHLOROQUINE
     Route: 048
  331. HYDROXYCHLOROQUINE [Concomitant]
     Active Substance: HYDROXYCHLOROQUINE
  332. HYDROXYCHLOROQUINE [Concomitant]
     Active Substance: HYDROXYCHLOROQUINE
     Route: 048
  333. HYDROXYCHLOROQUINE [Concomitant]
     Active Substance: HYDROXYCHLOROQUINE
     Route: 048
  334. HYDROXYCHLOROQUINE [Concomitant]
     Active Substance: HYDROXYCHLOROQUINE
     Route: 058
  335. HYDROXYCHLOROQUINE [Concomitant]
     Active Substance: HYDROXYCHLOROQUINE
  336. HYDROXYCHLOROQUINE [Concomitant]
     Active Substance: HYDROXYCHLOROQUINE
  337. HYDROXYCHLOROQUINE [Concomitant]
     Active Substance: HYDROXYCHLOROQUINE
  338. HYDROXYCHLOROQUINE [Concomitant]
     Active Substance: HYDROXYCHLOROQUINE
  339. HYDROXYCHLOROQUINE [Concomitant]
     Active Substance: HYDROXYCHLOROQUINE
     Route: 048
  340. HYDROXYCHLOROQUINE [Concomitant]
     Active Substance: HYDROXYCHLOROQUINE
  341. HYDROXYCHLOROQUINE [Concomitant]
     Active Substance: HYDROXYCHLOROQUINE
     Route: 005
  342. HYDROXYCHLOROQUINE [Concomitant]
     Active Substance: HYDROXYCHLOROQUINE
     Route: 048
  343. HYDROXYCHLOROQUINE [Concomitant]
     Active Substance: HYDROXYCHLOROQUINE
  344. HYDROXYCHLOROQUINE [Concomitant]
     Active Substance: HYDROXYCHLOROQUINE
     Route: 005
  345. HYDROXYCHLOROQUINE [Concomitant]
     Active Substance: HYDROXYCHLOROQUINE
     Route: 048
  346. HYDROXYCHLOROQUINE [Concomitant]
     Active Substance: HYDROXYCHLOROQUINE
  347. HYDROXYCHLOROQUINE [Concomitant]
     Active Substance: HYDROXYCHLOROQUINE
     Route: 048
  348. HYDROXYCHLOROQUINE [Concomitant]
     Active Substance: HYDROXYCHLOROQUINE
  349. HYDROXYCHLOROQUINE [Concomitant]
     Active Substance: HYDROXYCHLOROQUINE
     Route: 048
  350. HYDROXYCHLOROQUINE [Concomitant]
     Active Substance: HYDROXYCHLOROQUINE
  351. HYDROXYCHLOROQUINE [Concomitant]
     Active Substance: HYDROXYCHLOROQUINE
     Route: 048
  352. HYDROXYCHLOROQUINE SULFATE [Concomitant]
     Active Substance: HYDROXYCHLOROQUINE SULFATE
     Indication: Rheumatoid arthritis
     Route: 048
  353. HYDROXYCHLOROQUINE SULFATE [Concomitant]
     Active Substance: HYDROXYCHLOROQUINE SULFATE
     Route: 048
  354. HYDROXYCHLOROQUINE SULFATE [Concomitant]
     Active Substance: HYDROXYCHLOROQUINE SULFATE
  355. HYDROXYCHLOROQUINE SULFATE [Concomitant]
     Active Substance: HYDROXYCHLOROQUINE SULFATE
     Route: 016
  356. HYDROXYCHLOROQUINE SULFATE [Concomitant]
     Active Substance: HYDROXYCHLOROQUINE SULFATE
     Route: 048
  357. HYDROXYCHLOROQUINE SULFATE [Concomitant]
     Active Substance: HYDROXYCHLOROQUINE SULFATE
     Route: 048
  358. INFLIXIMAB [Concomitant]
     Active Substance: INFLIXIMAB
     Indication: Rheumatoid arthritis
     Route: 042
  359. INFLIXIMAB [Concomitant]
     Active Substance: INFLIXIMAB
     Dosage: CYCLIC
     Route: 042
  360. INFLIXIMAB [Concomitant]
     Active Substance: INFLIXIMAB
     Route: 058
  361. INFLIXIMAB [Concomitant]
     Active Substance: INFLIXIMAB
     Route: 042
  362. INFLIXIMAB [Concomitant]
     Active Substance: INFLIXIMAB
     Route: 042
  363. INFLIXIMAB [Concomitant]
     Active Substance: INFLIXIMAB
  364. INFLIXIMAB [Concomitant]
     Active Substance: INFLIXIMAB
     Route: 042
  365. INFLIXIMAB [Concomitant]
     Active Substance: INFLIXIMAB
     Route: 042
  366. INFLIXIMAB [Concomitant]
     Active Substance: INFLIXIMAB
     Route: 042
  367. KEVZARA [Concomitant]
     Active Substance: SARILUMAB
     Indication: Rheumatoid arthritis
  368. KEVZARA [Concomitant]
     Active Substance: SARILUMAB
  369. LAMICTAL [Concomitant]
     Active Substance: LAMOTRIGINE
     Indication: Product used for unknown indication
     Route: 048
  370. LAMICTAL [Concomitant]
     Active Substance: LAMOTRIGINE
     Route: 048
  371. LAMICTAL [Concomitant]
     Active Substance: LAMOTRIGINE
     Route: 048
  372. LAMICTAL [Concomitant]
     Active Substance: LAMOTRIGINE
     Route: 048
  373. LAMICTAL [Concomitant]
     Active Substance: LAMOTRIGINE
     Route: 048
  374. LAMICTAL [Concomitant]
     Active Substance: LAMOTRIGINE
     Route: 048
  375. LAMICTAL [Concomitant]
     Active Substance: LAMOTRIGINE
     Route: 048
  376. LAMICTAL [Concomitant]
     Active Substance: LAMOTRIGINE
     Route: 048
  377. LAMICTAL [Concomitant]
     Active Substance: LAMOTRIGINE
     Route: 048
  378. LEFLUNOMIDE [Concomitant]
     Active Substance: LEFLUNOMIDE
     Indication: Rheumatoid arthritis
  379. LEFLUNOMIDE [Concomitant]
     Active Substance: LEFLUNOMIDE
  380. LEFLUNOMIDE [Concomitant]
     Active Substance: LEFLUNOMIDE
     Route: 048
  381. LEFLUNOMIDE [Concomitant]
     Active Substance: LEFLUNOMIDE
     Route: 048
  382. LEFLUNOMIDE [Concomitant]
     Active Substance: LEFLUNOMIDE
  383. LEFLUNOMIDE [Concomitant]
     Active Substance: LEFLUNOMIDE
  384. LEFLUNOMIDE [Concomitant]
     Active Substance: LEFLUNOMIDE
  385. LEFLUNOMIDE [Concomitant]
     Active Substance: LEFLUNOMIDE
     Route: 048
  386. LEFLUNOMIDE [Concomitant]
     Active Substance: LEFLUNOMIDE
  387. LEFLUNOMIDE [Concomitant]
     Active Substance: LEFLUNOMIDE
  388. LEFLUNOMIDE [Concomitant]
     Active Substance: LEFLUNOMIDE
     Route: 048
  389. METHOTREXATE [Concomitant]
     Active Substance: METHOTREXATE
     Indication: Rheumatoid arthritis
     Route: 013
  390. METHOTREXATE [Concomitant]
     Active Substance: METHOTREXATE
     Route: 048
  391. METHOTREXATE [Concomitant]
     Active Substance: METHOTREXATE
     Route: 048
  392. METHOTREXATE [Concomitant]
     Active Substance: METHOTREXATE
     Route: 048
  393. METHOTREXATE [Concomitant]
     Active Substance: METHOTREXATE
     Route: 058
  394. METHOTREXATE [Concomitant]
     Active Substance: METHOTREXATE
     Route: 048
  395. METHOTREXATE [Concomitant]
     Active Substance: METHOTREXATE
     Route: 048
  396. METHOTREXATE [Concomitant]
     Active Substance: METHOTREXATE
     Route: 048
  397. METHOTREXATE [Concomitant]
     Active Substance: METHOTREXATE
     Route: 058
  398. METHOTREXATE [Concomitant]
     Active Substance: METHOTREXATE
     Route: 058
  399. METHOTREXATE [Concomitant]
     Active Substance: METHOTREXATE
     Route: 058
  400. METHOTREXATE [Concomitant]
     Active Substance: METHOTREXATE
     Route: 013
  401. METHOTREXATE [Concomitant]
     Active Substance: METHOTREXATE
     Route: 058
  402. METHOTREXATE [Concomitant]
     Active Substance: METHOTREXATE
     Route: 058
  403. METHOTREXATE [Concomitant]
     Active Substance: METHOTREXATE
     Route: 048
  404. METHOTREXATE [Concomitant]
     Active Substance: METHOTREXATE
     Route: 058
  405. METHOTREXATE [Concomitant]
     Active Substance: METHOTREXATE
     Route: 048
  406. METHOTREXATE [Concomitant]
     Active Substance: METHOTREXATE
     Route: 048
  407. METHOTREXATE [Concomitant]
     Active Substance: METHOTREXATE
     Route: 058
  408. METHOTREXATE [Concomitant]
     Active Substance: METHOTREXATE
     Route: 048
  409. METHOTREXATE [Concomitant]
     Active Substance: METHOTREXATE
     Route: 048
  410. METHOTREXATE [Concomitant]
     Active Substance: METHOTREXATE
  411. METHOTREXATE [Concomitant]
     Active Substance: METHOTREXATE
  412. METHOTREXATE [Concomitant]
     Active Substance: METHOTREXATE
     Route: 016
  413. METHOTREXATE [Concomitant]
     Active Substance: METHOTREXATE
     Route: 013
  414. METHOTREXATE [Concomitant]
     Active Substance: METHOTREXATE
     Route: 058
  415. METHOTREXATE [Concomitant]
     Active Substance: METHOTREXATE
     Route: 013
  416. METHOTREXATE [Concomitant]
     Active Substance: METHOTREXATE
  417. METHOTREXATE [Concomitant]
     Active Substance: METHOTREXATE
     Route: 048
  418. METHOTREXATE [Concomitant]
     Active Substance: METHOTREXATE
     Route: 048
  419. METHOTREXATE [Concomitant]
     Active Substance: METHOTREXATE
     Route: 048
  420. METHOTREXATE [Concomitant]
     Active Substance: METHOTREXATE
     Route: 048
  421. METHOTREXATE [Concomitant]
     Active Substance: METHOTREXATE
     Route: 048
  422. METHOTREXATE [Concomitant]
     Active Substance: METHOTREXATE
     Route: 048
  423. METHOTREXATE [Concomitant]
     Active Substance: METHOTREXATE
     Route: 013
  424. METHOTREXATE [Concomitant]
     Active Substance: METHOTREXATE
     Route: 048
  425. METHOTREXATE [Concomitant]
     Active Substance: METHOTREXATE
  426. METHOTREXATE [Concomitant]
     Active Substance: METHOTREXATE
  427. METHOTREXATE [Concomitant]
     Active Substance: METHOTREXATE
  428. METHOTREXATE [Concomitant]
     Active Substance: METHOTREXATE
     Route: 058
  429. METHOTREXATE [Concomitant]
     Active Substance: METHOTREXATE
     Route: 048
  430. METHOTREXATE [Concomitant]
     Active Substance: METHOTREXATE
  431. METHOTREXATE [Concomitant]
     Active Substance: METHOTREXATE
     Route: 048
  432. METHOTREXATE [Concomitant]
     Active Substance: METHOTREXATE
     Route: 048
  433. METHYLPREDNISOLONE [Concomitant]
     Active Substance: METHYLPREDNISOLONE
     Indication: Product used for unknown indication
  434. METHYLPREDNISOLONE [Concomitant]
     Active Substance: METHYLPREDNISOLONE
  435. METHYLPREDNISOLONE SODIUM SUCCINATE [Concomitant]
     Active Substance: METHYLPREDNISOLONE SODIUM SUCCINATE
     Indication: Product used for unknown indication
  436. METHYLPREDNISOLONE SODIUM SUCCINATE [Concomitant]
     Active Substance: METHYLPREDNISOLONE SODIUM SUCCINATE
  437. MINOCYCLINE HYDROCHLORIDE [Concomitant]
     Active Substance: MINOCYCLINE HYDROCHLORIDE
     Indication: Rheumatoid arthritis
  438. MINOCYCLINE [Concomitant]
     Active Substance: MINOCYCLINE HYDROCHLORIDE
     Indication: Product used for unknown indication
  439. MINOCYCLINE [Concomitant]
     Active Substance: MINOCYCLINE HYDROCHLORIDE
  440. MINOCYCLINE HYDROCHLORIDE [Concomitant]
     Active Substance: MINOCYCLINE HYDROCHLORIDE
     Indication: Rheumatoid arthritis
  441. MINOCYCLINE HYDROCHLORIDE [Concomitant]
     Active Substance: MINOCYCLINE HYDROCHLORIDE
  442. MINOCYCLINE HYDROCHLORIDE [Concomitant]
     Active Substance: MINOCYCLINE HYDROCHLORIDE
  443. MYOCHRYSINE [Concomitant]
     Active Substance: GOLD SODIUM THIOMALATE
     Indication: Rheumatoid arthritis
     Dosage: SOLUTION INTRAMUSCULAR
     Route: 030
  444. MYOCHRYSINE [Concomitant]
     Active Substance: GOLD SODIUM THIOMALATE
     Dosage: SOLUTION INTRAMUSCULAR
     Route: 030
  445. MYRBETRIQ [Concomitant]
     Active Substance: MIRABEGRON
     Indication: Product used for unknown indication
     Dosage: TABLET (EXTENDED-RELEASE)
  446. MYRBETRIQ [Concomitant]
     Active Substance: MIRABEGRON
     Dosage: TABLET (EXTENDED-RELEASE)
     Route: 030
  447. MYRBETRIQ [Concomitant]
     Active Substance: MIRABEGRON
     Dosage: TABLET (EXTENDED-RELEASE)
  448. MYRBETRIQ [Concomitant]
     Active Substance: MIRABEGRON
     Dosage: TABLET (EXTENDED-RELEASE)
  449. MYRBETRIQ [Concomitant]
     Active Substance: MIRABEGRON
  450. MYRBETRIQ [Concomitant]
     Active Substance: MIRABEGRON
  451. NAPROXEN [Concomitant]
     Active Substance: NAPROXEN
     Indication: Product used for unknown indication
  452. NAPROXEN [Concomitant]
     Active Substance: NAPROXEN
     Dosage: TABLET (ENTERIC- COATED)
  453. NAPROXEN [Concomitant]
     Active Substance: NAPROXEN
     Indication: Product used for unknown indication
  454. NAPROXEN [Concomitant]
     Active Substance: NAPROXEN
  455. NAPROXEN SODIUM [Concomitant]
     Active Substance: NAPROXEN SODIUM
     Indication: Rheumatoid arthritis
  456. NAPROXEN SODIUM [Concomitant]
     Active Substance: NAPROXEN SODIUM
  457. NUCALA [Concomitant]
     Active Substance: MEPOLIZUMAB
     Indication: Product used for unknown indication
  458. NUCALA [Concomitant]
     Active Substance: MEPOLIZUMAB
  459. OXYCODONE [Concomitant]
     Active Substance: OXYCODONE
     Indication: Product used for unknown indication
  460. OXYCODONE [Concomitant]
     Active Substance: OXYCODONE
  461. OXYCODONE TEREPHTHALATE [Concomitant]
     Active Substance: OXYCODONE TEREPHTHALATE
     Indication: Product used for unknown indication
  462. OXYCODONE TEREPHTHALATE [Concomitant]
     Active Substance: OXYCODONE TEREPHTHALATE
  463. PHENYLEPHRINE HYDROCHLORIDE [Concomitant]
     Active Substance: PHENYLEPHRINE HYDROCHLORIDE
     Indication: Rheumatoid arthritis
  464. PHENYLEPHRINE HYDROCHLORIDE [Concomitant]
     Active Substance: PHENYLEPHRINE HYDROCHLORIDE
  465. PHTHALYLSULFATHIAZOLE [Concomitant]
     Active Substance: PHTHALYLSULFATHIAZOLE
     Indication: Rheumatoid arthritis
     Route: 048
  466. PHTHALYLSULFATHIAZOLE [Concomitant]
     Active Substance: PHTHALYLSULFATHIAZOLE
     Route: 048
  467. PHTHALYLSULFATHIAZOLE [Concomitant]
     Active Substance: PHTHALYLSULFATHIAZOLE
     Route: 042
  468. PHTHALYLSULFATHIAZOLE [Concomitant]
     Active Substance: PHTHALYLSULFATHIAZOLE
     Route: 058
  469. PHTHALYLSULFATHIAZOLE [Concomitant]
     Active Substance: PHTHALYLSULFATHIAZOLE
     Route: 067
  470. PHTHALYLSULFATHIAZOLE [Concomitant]
     Active Substance: PHTHALYLSULFATHIAZOLE
     Route: 048
  471. PHTHALYLSULFATHIAZOLE [Concomitant]
     Active Substance: PHTHALYLSULFATHIAZOLE
     Route: 048
  472. PHTHALYLSULFATHIAZOLE [Concomitant]
     Active Substance: PHTHALYLSULFATHIAZOLE
  473. PREDNISONE [Concomitant]
     Active Substance: PREDNISONE
     Indication: Rheumatoid arthritis
     Route: 048
  474. PREDNISONE [Concomitant]
     Active Substance: PREDNISONE
     Route: 048
  475. PREDNISONE [Concomitant]
     Active Substance: PREDNISONE
     Route: 048
  476. PREDNISONE [Concomitant]
     Active Substance: PREDNISONE
     Route: 048
  477. PREDNISONE [Concomitant]
     Active Substance: PREDNISONE
  478. PREDNISONE [Concomitant]
     Active Substance: PREDNISONE
  479. PREDNISONE [Concomitant]
     Active Substance: PREDNISONE
  480. PREDNISONE [Concomitant]
     Active Substance: PREDNISONE
     Route: 048
  481. PREDNISONE [Concomitant]
     Active Substance: PREDNISONE
  482. PREDNISONE [Concomitant]
     Active Substance: PREDNISONE
     Route: 048
  483. PREDNISONE [Concomitant]
     Active Substance: PREDNISONE
     Route: 048
  484. PREDNISONE [Concomitant]
     Active Substance: PREDNISONE
  485. PREDNISONE [Concomitant]
     Active Substance: PREDNISONE
  486. PREDNISONE [Concomitant]
     Active Substance: PREDNISONE
  487. PREDNISONE [Concomitant]
     Active Substance: PREDNISONE
     Route: 048
  488. PREDNISONE [Concomitant]
     Active Substance: PREDNISONE
     Route: 048
  489. PREDNISONE [Concomitant]
     Active Substance: PREDNISONE
     Route: 048
  490. PREDNISONE [Concomitant]
     Active Substance: PREDNISONE
  491. PREDNISONE [Concomitant]
     Active Substance: PREDNISONE
  492. PSEUDOEPHEDRINE HYDROCHLORIDE [Concomitant]
     Active Substance: PSEUDOEPHEDRINE HYDROCHLORIDE
     Indication: Rheumatoid arthritis
  493. PSEUDOEPHEDRINE HYDROCHLORIDE [Concomitant]
     Active Substance: PSEUDOEPHEDRINE HYDROCHLORIDE
  494. PSEUDOEPHEDRINE HYDROCHLORIDE [Concomitant]
     Active Substance: PSEUDOEPHEDRINE HYDROCHLORIDE
  495. PSEUDOEPHEDRINE HYDROCHLORIDE [Concomitant]
     Active Substance: PSEUDOEPHEDRINE HYDROCHLORIDE
     Route: 048
  496. PSEUDOEPHEDRINE HYDROCHLORIDE [Concomitant]
     Active Substance: PSEUDOEPHEDRINE HYDROCHLORIDE
     Dosage: LIQUID INTRAMUSCULAR
     Route: 030
  497. PSEUDOEPHEDRINE HYDROCHLORIDE [Concomitant]
     Active Substance: PSEUDOEPHEDRINE HYDROCHLORIDE
  498. PSEUDOEPHEDRINE HYDROCHLORIDE [Concomitant]
     Active Substance: PSEUDOEPHEDRINE HYDROCHLORIDE
  499. PSEUDOEPHEDRINE HYDROCHLORIDE [Concomitant]
     Active Substance: PSEUDOEPHEDRINE HYDROCHLORIDE
  500. PSEUDOEPHEDRINE HYDROCHLORIDE [Concomitant]
     Active Substance: PSEUDOEPHEDRINE HYDROCHLORIDE
  501. RAMIPRIL [Concomitant]
     Active Substance: RAMIPRIL
     Indication: Rheumatoid arthritis
     Route: 016
  502. RAMIPRIL [Concomitant]
     Active Substance: RAMIPRIL
     Route: 042
  503. RAMIPRIL [Concomitant]
     Active Substance: RAMIPRIL
     Route: 016
  504. RANITIDINE [Concomitant]
     Active Substance: RANITIDINE
     Indication: Product used for unknown indication
  505. RANITIDINE [Concomitant]
     Active Substance: RANITIDINE
  506. RANITIDINE [Concomitant]
     Active Substance: RANITIDINE
  507. RANITIDINE [Concomitant]
     Active Substance: RANITIDINE
  508. RANITIDINE [Concomitant]
     Active Substance: RANITIDINE
     Route: 058
  509. RANITIDINE [Concomitant]
     Active Substance: RANITIDINE
     Route: 042
  510. CETIRIZINE HYDROCHLORIDE\PSEUDOEPHEDRINE HYDROCHLORIDE [Concomitant]
     Active Substance: CETIRIZINE HYDROCHLORIDE\PSEUDOEPHEDRINE HYDROCHLORIDE
     Indication: Rheumatoid arthritis
     Route: 042
  511. CETIRIZINE HYDROCHLORIDE\PSEUDOEPHEDRINE HYDROCHLORIDE [Concomitant]
     Active Substance: CETIRIZINE HYDROCHLORIDE\PSEUDOEPHEDRINE HYDROCHLORIDE
     Dosage: TABLET (EXTENDED-RELEASE)
  512. CETIRIZINE HYDROCHLORIDE\PSEUDOEPHEDRINE HYDROCHLORIDE [Concomitant]
     Active Substance: CETIRIZINE HYDROCHLORIDE\PSEUDOEPHEDRINE HYDROCHLORIDE
  513. CETIRIZINE HYDROCHLORIDE\PSEUDOEPHEDRINE HYDROCHLORIDE [Concomitant]
     Active Substance: CETIRIZINE HYDROCHLORIDE\PSEUDOEPHEDRINE HYDROCHLORIDE
  514. REMICADE [Concomitant]
     Active Substance: INFLIXIMAB
     Indication: Rheumatoid arthritis
     Route: 058
  515. REMICADE [Concomitant]
     Active Substance: INFLIXIMAB
     Route: 042
  516. REMICADE [Concomitant]
     Active Substance: INFLIXIMAB
     Route: 042
  517. REMICADE [Concomitant]
     Active Substance: INFLIXIMAB
     Route: 042
  518. REMICADE [Concomitant]
     Active Substance: INFLIXIMAB
  519. REMICADE [Concomitant]
     Active Substance: INFLIXIMAB
     Route: 041
  520. RITUXIMAB [Concomitant]
     Active Substance: RITUXIMAB
     Indication: Rheumatoid arthritis
     Route: 041
  521. RITUXIMAB [Concomitant]
     Active Substance: RITUXIMAB
  522. RITUXIMAB [Concomitant]
     Active Substance: RITUXIMAB
     Route: 042
  523. RITUXIMAB [Concomitant]
     Active Substance: RITUXIMAB
  524. RITUXIMAB [Concomitant]
     Active Substance: RITUXIMAB
     Route: 058
  525. RITUXIMAB [Concomitant]
     Active Substance: RITUXIMAB
  526. RITUXIMAB [Concomitant]
     Active Substance: RITUXIMAB
     Route: 043
  527. RITUXIMAB [Concomitant]
     Active Substance: RITUXIMAB
     Route: 042
  528. RITUXIMAB [Concomitant]
     Active Substance: RITUXIMAB
  529. RITUXIMAB [Concomitant]
     Active Substance: RITUXIMAB
     Route: 058
  530. RITUXIMAB [Concomitant]
     Active Substance: RITUXIMAB
     Route: 042
  531. RITUXIMAB [Concomitant]
     Active Substance: RITUXIMAB
  532. RITUXIMAB [Concomitant]
     Active Substance: RITUXIMAB
     Route: 042
  533. RITUXIMAB [Concomitant]
     Active Substance: RITUXIMAB
     Route: 042
  534. RITUXIMAB [Concomitant]
     Active Substance: RITUXIMAB
     Route: 042
  535. RITUXIMAB [Concomitant]
     Active Substance: RITUXIMAB
     Route: 042
  536. RITUXIMAB [Concomitant]
     Active Substance: RITUXIMAB
     Route: 042
  537. RITUXIMAB [Concomitant]
     Active Substance: RITUXIMAB
     Route: 040
  538. RITUXIMAB [Concomitant]
     Active Substance: RITUXIMAB
  539. RITUXIMAB [Concomitant]
     Active Substance: RITUXIMAB
     Route: 016
  540. RITUXIMAB [Concomitant]
     Active Substance: RITUXIMAB
  541. RITUXIMAB [Concomitant]
     Active Substance: RITUXIMAB
  542. RITUXIMAB [Concomitant]
     Active Substance: RITUXIMAB
  543. RITUXIMAB [Concomitant]
     Active Substance: RITUXIMAB
  544. RITUXIMAB [Concomitant]
     Active Substance: RITUXIMAB
     Route: 042
  545. RITUXIMAB [Concomitant]
     Active Substance: RITUXIMAB
     Route: 042
  546. RITUXIMAB [Concomitant]
     Active Substance: RITUXIMAB
     Route: 042
  547. RITUXIMAB [Concomitant]
     Active Substance: RITUXIMAB
     Route: 042
  548. RITUXIMAB [Concomitant]
     Active Substance: RITUXIMAB
     Route: 042
  549. RITUXIMAB [Concomitant]
     Active Substance: RITUXIMAB
     Route: 058
  550. RITUXIMAB [Concomitant]
     Active Substance: RITUXIMAB
     Route: 058
  551. RITUXIMAB [Concomitant]
     Active Substance: RITUXIMAB
     Route: 043
  552. RITUXIMAB [Concomitant]
     Active Substance: RITUXIMAB
     Route: 043
  553. RITUXIMAB [Concomitant]
     Active Substance: RITUXIMAB
     Route: 016
  554. RITUXIMAB [Concomitant]
     Active Substance: RITUXIMAB
     Route: 016
  555. RITUXIMAB [Concomitant]
     Active Substance: RITUXIMAB
  556. SULFASALAZINE [Concomitant]
     Active Substance: SULFASALAZINE
     Indication: Rheumatoid arthritis
  557. SULFASALAZINE [Concomitant]
     Active Substance: SULFASALAZINE
  558. SULFASALAZINE [Concomitant]
     Active Substance: SULFASALAZINE
     Route: 048
  559. SULFASALAZINE [Concomitant]
     Active Substance: SULFASALAZINE
     Route: 058
  560. SULFASALAZINE [Concomitant]
     Active Substance: SULFASALAZINE
     Route: 048
  561. SULFASALAZINE [Concomitant]
     Active Substance: SULFASALAZINE
     Route: 048
  562. SULFASALAZINE [Concomitant]
     Active Substance: SULFASALAZINE
     Route: 048
  563. SULFASALAZINE [Concomitant]
     Active Substance: SULFASALAZINE
  564. SULFASALAZINE [Concomitant]
     Active Substance: SULFASALAZINE
  565. SULFASALAZINE [Concomitant]
     Active Substance: SULFASALAZINE
     Route: 048
  566. SIMPONI [Concomitant]
     Active Substance: GOLIMUMAB
     Indication: Rheumatoid arthritis
     Dosage: SOLUTION SUBCUTANEOUS
     Route: 058
  567. SIMPONI [Concomitant]
     Active Substance: GOLIMUMAB
     Indication: Prostatic specific antigen
  568. SIMPONI [Concomitant]
     Active Substance: GOLIMUMAB
     Route: 058
  569. SIMPONI [Concomitant]
     Active Substance: GOLIMUMAB
  570. SIRUKUMAB [Concomitant]
     Active Substance: SIRUKUMAB
     Indication: Product used for unknown indication
  571. SIRUKUMAB [Concomitant]
     Active Substance: SIRUKUMAB
  572. GOLD SODIUM THIOMALATE [Concomitant]
     Active Substance: GOLD SODIUM THIOMALATE
     Indication: Product used for unknown indication
     Route: 048
  573. GOLD SODIUM THIOMALATE [Concomitant]
     Active Substance: GOLD SODIUM THIOMALATE
     Route: 058
  574. GOLD SODIUM THIOMALATE [Concomitant]
     Active Substance: GOLD SODIUM THIOMALATE
     Route: 030
  575. STELARA [Concomitant]
     Active Substance: USTEKINUMAB
     Indication: Rheumatoid arthritis
     Dosage: SOLUTION SUBCUTANEOUS
     Route: 058
  576. STELARA [Concomitant]
     Active Substance: USTEKINUMAB
  577. SULFASALAZINE [Concomitant]
     Active Substance: SULFASALAZINE
     Indication: Rheumatoid arthritis
     Route: 048
  578. SULFASALAZINE [Concomitant]
     Active Substance: SULFASALAZINE
     Route: 058
  579. SULFASALAZINE [Concomitant]
     Active Substance: SULFASALAZINE
     Route: 058
  580. SULFASALAZINE [Concomitant]
     Active Substance: SULFASALAZINE
     Route: 048
  581. SULFASALAZINE [Concomitant]
     Active Substance: SULFASALAZINE
     Route: 048
  582. SULFASALAZINE [Concomitant]
     Active Substance: SULFASALAZINE
     Route: 048
  583. SULFASALAZINE [Concomitant]
     Active Substance: SULFASALAZINE
     Route: 058
  584. SULFASALAZINE [Concomitant]
     Active Substance: SULFASALAZINE
     Route: 048
  585. SULFASALAZINE [Concomitant]
     Active Substance: SULFASALAZINE
     Route: 058
  586. SULFASALAZINE [Concomitant]
     Active Substance: SULFASALAZINE
     Route: 048
  587. SULFASALAZINE [Concomitant]
     Active Substance: SULFASALAZINE
     Route: 048
  588. SULFASALAZINE [Concomitant]
     Active Substance: SULFASALAZINE
     Route: 048
  589. SULFASALAZINE [Concomitant]
     Active Substance: SULFASALAZINE
     Route: 048
  590. SULFASALAZINE [Concomitant]
     Active Substance: SULFASALAZINE
     Route: 048
  591. SULFASALAZINE [Concomitant]
     Active Substance: SULFASALAZINE
     Route: 048
  592. TOCILIZUMAB [Concomitant]
     Active Substance: TOCILIZUMAB
     Indication: Rheumatoid arthritis
     Route: 058
  593. TOCILIZUMAB [Concomitant]
     Active Substance: TOCILIZUMAB
     Route: 042
  594. TOCILIZUMAB [Concomitant]
     Active Substance: TOCILIZUMAB
  595. TOCILIZUMAB [Concomitant]
     Active Substance: TOCILIZUMAB
     Route: 058
  596. TOCILIZUMAB [Concomitant]
     Active Substance: TOCILIZUMAB
     Route: 042
  597. TOFACITINIB [Concomitant]
     Active Substance: TOFACITINIB
     Indication: Rheumatoid arthritis
  598. TOFACITINIB [Concomitant]
     Active Substance: TOFACITINIB
     Route: 048
  599. TOFACITINIB [Concomitant]
     Active Substance: TOFACITINIB
  600. TOFACITINIB [Concomitant]
     Active Substance: TOFACITINIB
  601. TOFACITINIB CITRATE [Concomitant]
     Active Substance: TOFACITINIB CITRATE
     Indication: Rheumatoid arthritis
  602. TOFACITINIB CITRATE [Concomitant]
     Active Substance: TOFACITINIB CITRATE
     Route: 048
  603. TOFACITINIB CITRATE [Concomitant]
     Active Substance: TOFACITINIB CITRATE
  604. TOPIRAMATE [Concomitant]
     Active Substance: TOPIRAMATE
     Indication: Migraine
  605. TOPIRAMATE [Concomitant]
     Active Substance: TOPIRAMATE
  606. TOPIRAMATE [Concomitant]
     Active Substance: TOPIRAMATE
  607. TOPIRAMATE [Concomitant]
     Active Substance: TOPIRAMATE
  608. TOPIRAMATE [Concomitant]
     Active Substance: TOPIRAMATE
  609. TOPIRAMATE [Concomitant]
     Active Substance: TOPIRAMATE
  610. TRAMADOL HYDROCHLORIDE [Concomitant]
     Active Substance: TRAMADOL HYDROCHLORIDE
     Indication: Product used for unknown indication
     Dosage: SUSPENSION INTRA-ARTICULAR
  611. TRAMADOL HYDROCHLORIDE [Concomitant]
     Active Substance: TRAMADOL HYDROCHLORIDE
  612. USTEKINUMAB [Concomitant]
     Active Substance: USTEKINUMAB
     Indication: Product used for unknown indication
  613. USTEKINUMAB [Concomitant]
     Active Substance: USTEKINUMAB
     Route: 058
  614. VITAMIN C [Concomitant]
     Active Substance: ASCORBIC ACID
     Indication: Product used for unknown indication
  615. VITAMIN C [Concomitant]
     Active Substance: ASCORBIC ACID
  616. VITAMIN D3 [Concomitant]
     Active Substance: CHOLECALCIFEROL
     Indication: Product used for unknown indication
  617. XELJANZ [Concomitant]
     Active Substance: TOFACITINIB CITRATE
     Indication: Rheumatoid arthritis
     Route: 048
  618. XELJANZ [Concomitant]
     Active Substance: TOFACITINIB CITRATE
  619. XELJANZ [Concomitant]
     Active Substance: TOFACITINIB CITRATE
     Route: 048
  620. XELJANZ [Concomitant]
     Active Substance: TOFACITINIB CITRATE
  621. XELJANZ [Concomitant]
     Active Substance: TOFACITINIB CITRATE
     Route: 048
  622. XELJANZ [Concomitant]
     Active Substance: TOFACITINIB CITRATE
     Route: 048
  623. XELJANZ [Concomitant]
     Active Substance: TOFACITINIB CITRATE
     Route: 048
  624. XELJANZ [Concomitant]
     Active Substance: TOFACITINIB CITRATE
     Route: 048
  625. XELJANZ [Concomitant]
     Active Substance: TOFACITINIB CITRATE
  626. XELJANZ [Concomitant]
     Active Substance: TOFACITINIB CITRATE
  627. GOLD [Concomitant]
     Active Substance: GOLD
     Indication: Product used for unknown indication
  628. GOLD [Concomitant]
     Active Substance: GOLD
  629. HAIR KERATIN AMINO ACIDS GOLD COMPLEX [Concomitant]
     Active Substance: HAIR KERATIN AMINO ACIDS GOLD COMPLEX
     Indication: Product used for unknown indication
  630. DICLOFENAC POTASSIUM [Concomitant]
     Active Substance: DICLOFENAC POTASSIUM
     Indication: Product used for unknown indication
  631. MEGLUMINE [Concomitant]
     Active Substance: MEGLUMINE
     Indication: Product used for unknown indication
     Route: 042
  632. MEGLUMINE [Concomitant]
     Active Substance: MEGLUMINE
  633. MEGLUMINE [Concomitant]
     Active Substance: MEGLUMINE
     Route: 040
  634. ALENDRONATE SODIUM [Concomitant]
     Active Substance: ALENDRONATE SODIUM
     Indication: Rheumatoid arthritis
     Route: 048
  635. ALENDRONATE SODIUM [Concomitant]
     Active Substance: ALENDRONATE SODIUM
     Route: 048
  636. ALENDRONATE SODIUM [Concomitant]
     Active Substance: ALENDRONATE SODIUM
  637. DESOGESTREL AND ETHINYL ESTRADIOL [Concomitant]
     Active Substance: DESOGESTREL\ETHINYL ESTRADIOL
     Indication: Product used for unknown indication
  638. OTEZLA [Concomitant]
     Active Substance: APREMILAST
     Indication: Product used for unknown indication
  639. ALENDRONATE SODIUM\CHOLECALCIFEROL [Concomitant]
     Active Substance: ALENDRONATE SODIUM\CHOLECALCIFEROL
     Indication: Rheumatoid arthritis
     Route: 048
  640. CALCIUM ASCORBATE [Concomitant]
     Active Substance: CALCIUM ASCORBATE
     Indication: Product used for unknown indication
  641. CALCIUM CARBONATE [Concomitant]
     Active Substance: CALCIUM CARBONATE
     Indication: Product used for unknown indication
  642. CALCIUM CITRATE [Concomitant]
     Active Substance: CALCIUM CITRATE
     Indication: Product used for unknown indication
  643. CALCIUM GLUBIONATE [Concomitant]
     Active Substance: CALCIUM GLUBIONATE
     Indication: Product used for unknown indication
     Route: 016
  644. CHOLECALCIFEROL [Concomitant]
     Active Substance: CHOLECALCIFEROL
     Indication: Rheumatoid arthritis
  645. CHOLECALCIFEROL [Concomitant]
     Active Substance: CHOLECALCIFEROL
  646. CHLORHEXIDINE GLUCONATE\ISOPROPYL ALCOHOL [Concomitant]
     Active Substance: CHLORHEXIDINE GLUCONATE\ISOPROPYL ALCOHOL
     Indication: Product used for unknown indication
     Route: 061
  647. HYDROCORTISONE PROBUTATE [Concomitant]
     Active Substance: HYDROCORTISONE PROBUTATE
     Indication: Rheumatoid arthritis
  648. DIETARY SUPPLEMENT [Concomitant]
     Active Substance: DIETARY SUPPLEMENT
     Indication: Product used for unknown indication
  649. DICLOFENAC DIETHYLAMINE [Concomitant]
     Active Substance: DICLOFENAC DIETHYLAMINE
     Indication: Product used for unknown indication
  650. TRAMADOL HYDROCHLORIDE [Concomitant]
     Active Substance: TRAMADOL HYDROCHLORIDE
     Indication: Product used for unknown indication
  651. AZATHIOPRINE [Concomitant]
     Active Substance: AZATHIOPRINE
     Indication: Product used for unknown indication
  652. DESOGESTREL AND ETHINYL ESTRADIOL [Concomitant]
     Active Substance: DESOGESTREL\ETHINYL ESTRADIOL
     Indication: Product used for unknown indication
  653. SULFAMETHOXAZOLE\TRIMETHOPRIM [Concomitant]
     Active Substance: SULFAMETHOXAZOLE\TRIMETHOPRIM
     Indication: Product used for unknown indication
  654. CETIRIZINE [Concomitant]
     Active Substance: CETIRIZINE HYDROCHLORIDE
     Indication: Rheumatoid arthritis
     Route: 048
  655. CETIRIZINE [Concomitant]
     Active Substance: CETIRIZINE HYDROCHLORIDE
     Route: 048
  656. CETIRIZINE [Concomitant]
     Active Substance: CETIRIZINE HYDROCHLORIDE
     Route: 048
  657. CETIRIZINE [Concomitant]
     Active Substance: CETIRIZINE HYDROCHLORIDE
  658. CETIRIZINE [Concomitant]
     Active Substance: CETIRIZINE HYDROCHLORIDE
  659. CETIRIZINE [Concomitant]
     Active Substance: CETIRIZINE HYDROCHLORIDE
  660. CETIRIZINE [Concomitant]
     Active Substance: CETIRIZINE HYDROCHLORIDE
  661. CETIRIZINE [Concomitant]
     Active Substance: CETIRIZINE HYDROCHLORIDE
  662. RANITIDINE HYDROCHLORIDE [Concomitant]
     Active Substance: RANITIDINE HYDROCHLORIDE
     Indication: Product used for unknown indication
  663. ERGOCALCIFEROL [Concomitant]
     Active Substance: ERGOCALCIFEROL
     Indication: Product used for unknown indication
  664. ERGOCALCIFEROL [Concomitant]
     Active Substance: ERGOCALCIFEROL
  665. MAGNESIUM CITRATE [Concomitant]
     Active Substance: MAGNESIUM CITRATE
     Indication: Product used for unknown indication
  666. THIAMINE HYDROCHLORIDE [Concomitant]
     Active Substance: THIAMINE HYDROCHLORIDE
     Indication: Product used for unknown indication
  667. ATOMOXETINE HYDROCHLORIDE [Concomitant]
     Active Substance: ATOMOXETINE HYDROCHLORIDE
     Indication: Migraine
  668. ATOMOXETINE HYDROCHLORIDE [Concomitant]
     Active Substance: ATOMOXETINE HYDROCHLORIDE
     Route: 005
  669. ATOMOXETINE HYDROCHLORIDE [Concomitant]
     Active Substance: ATOMOXETINE HYDROCHLORIDE
  670. ATOMOXETINE HYDROCHLORIDE [Concomitant]
     Active Substance: ATOMOXETINE HYDROCHLORIDE
     Route: 005
  671. HYDROCORTISONE\NEOMYCIN SULFATE [Concomitant]
     Active Substance: HYDROCORTISONE\NEOMYCIN SULFATE
     Indication: Product used for unknown indication
  672. ISOPROPYL ALCOHOL [Concomitant]
     Active Substance: ISOPROPYL ALCOHOL
     Indication: Product used for unknown indication
     Dosage: LIQUID TOPICAL
     Route: 061
  673. PERIOGARD [Concomitant]
     Active Substance: CHLORHEXIDINE GLUCONATE
     Indication: Product used for unknown indication
     Route: 061
  674. RIBOFLAVIN [Concomitant]
     Active Substance: RIBOFLAVIN
     Indication: Product used for unknown indication
  675. VITAMIN A [Concomitant]
     Active Substance: VITAMIN A
     Indication: Product used for unknown indication
  676. CALCIUM CARBONATE\CALCIUM GLUCONATE\CALCIUM LACTATE [Concomitant]
     Active Substance: CALCIUM CARBONATE\CALCIUM GLUCONATE\CALCIUM LACTATE
     Indication: Product used for unknown indication
  677. CHLORHEXIDINE GLUCONATE [Concomitant]
     Active Substance: CHLORHEXIDINE GLUCONATE
     Indication: Product used for unknown indication
  678. CHLORHEXIDINE GLUCONATE [Concomitant]
     Active Substance: CHLORHEXIDINE GLUCONATE
  679. CHLORHEXIDINE GLUCONATE [Concomitant]
     Active Substance: CHLORHEXIDINE GLUCONATE
  680. CHLORHEXIDINE GLUCONATE [Concomitant]
     Active Substance: CHLORHEXIDINE GLUCONATE
     Route: 061
  681. ACETAMINOPHEN AND CODEINE [Concomitant]
     Active Substance: ACETAMINOPHEN\CODEINE PHOSPHATE
     Indication: Rheumatoid arthritis
     Dosage: ACETAMINOPHEN+COD.PHOS.ELX, USP160MG-8MG/5ML, DOSAGE FORM: ELIXIR
  682. ACETAMINOPHEN AND CODEINE [Concomitant]
     Active Substance: ACETAMINOPHEN\CODEINE PHOSPHATE
  683. ALENDRONATE [Concomitant]
     Active Substance: ALENDRONATE SODIUM
     Indication: Rheumatoid arthritis
  684. FLUMETHASONE PIVALATE [Concomitant]
     Active Substance: FLUMETHASONE PIVALATE
     Indication: Product used for unknown indication
  685. FLUMETHASONE PIVALATE [Concomitant]
     Active Substance: FLUMETHASONE PIVALATE
     Route: 003
  686. ATIVAN [Concomitant]
     Active Substance: LORAZEPAM
     Indication: Anxiety
  687. CALCIUM [Concomitant]
     Active Substance: CALCIUM
     Indication: Product used for unknown indication
  688. CALCIUM GLUCONATE [Concomitant]
     Active Substance: CALCIUM GLUCONATE
     Indication: Product used for unknown indication
  689. CALCIUM LACTATE [Concomitant]
     Active Substance: CALCIUM LACTATE
     Indication: Product used for unknown indication
  690. CHLORHEXIDINE GLUCONATE [Concomitant]
     Active Substance: CHLORHEXIDINE GLUCONATE
     Indication: Product used for unknown indication
     Route: 061
  691. CYANOCOBALAMIN [Concomitant]
     Active Substance: CYANOCOBALAMIN
     Indication: Product used for unknown indication
  692. IRON\VITAMINS [Concomitant]
     Active Substance: IRON\VITAMINS
     Indication: Product used for unknown indication
  693. GLUCOSAMINE [Concomitant]
     Active Substance: GLUCOSAMINE
     Indication: Product used for unknown indication
  694. IBUPROFEN [Concomitant]
     Active Substance: IBUPROFEN
     Indication: Rheumatoid arthritis
  695. LANSOPRAZOLE [Concomitant]
     Active Substance: LANSOPRAZOLE
     Indication: Product used for unknown indication
  696. LISINOPRIL [Concomitant]
     Active Substance: LISINOPRIL
     Indication: Product used for unknown indication
  697. LORAZEPAM [Concomitant]
     Active Substance: LORAZEPAM
     Indication: Product used for unknown indication
  698. MAGNESIUM [Concomitant]
     Active Substance: MAGNESIUM
     Indication: Product used for unknown indication
  699. PANTOPRAZOLE [Concomitant]
     Active Substance: PANTOPRAZOLE
     Indication: Product used for unknown indication
  700. PANTOPRAZOLE [Concomitant]
     Active Substance: PANTOPRAZOLE
     Indication: Product used for unknown indication
  701. PREDNISOLONE [Concomitant]
     Active Substance: PREDNISOLONE
     Indication: Product used for unknown indication
  702. QUETIAPINE [Concomitant]
     Active Substance: QUETIAPINE
     Indication: Product used for unknown indication
  703. QUETIAPINE FUMARATE [Concomitant]
     Active Substance: QUETIAPINE FUMARATE
     Indication: Product used for unknown indication
  704. RISEDRONATE SODIUM [Concomitant]
     Active Substance: RISEDRONATE SODIUM
     Indication: Product used for unknown indication
  705. DIETARY SUPPLEMENT\HERBALS [Concomitant]
     Active Substance: DIETARY SUPPLEMENT\HERBALS
     Indication: Product used for unknown indication
     Route: 048
  706. FISH OIL [Concomitant]
     Active Substance: FISH OIL
     Indication: Product used for unknown indication
  707. TOPAMAX [Concomitant]
     Active Substance: TOPIRAMATE
     Indication: Migraine
     Route: 048
  708. TOPAMAX [Concomitant]
     Active Substance: TOPIRAMATE
     Route: 048
  709. TOPAMAX [Concomitant]
     Active Substance: TOPIRAMATE
  710. TOPAMAX [Concomitant]
     Active Substance: TOPIRAMATE
     Route: 048
  711. TOPAMAX [Concomitant]
     Active Substance: TOPIRAMATE
     Route: 048
  712. VITAMIN D3 [Concomitant]
     Active Substance: CHOLECALCIFEROL
     Indication: Product used for unknown indication
  713. FLUMETHASONE PIVALATE [Concomitant]
     Active Substance: FLUMETHASONE PIVALATE
     Indication: Product used for unknown indication
  714. FLUMETHASONE PIVALATE [Concomitant]
     Active Substance: FLUMETHASONE PIVALATE
     Route: 003
  715. MEGLUMINE [Concomitant]
     Active Substance: MEGLUMINE
     Indication: Product used for unknown indication
     Route: 040
  716. MEGLUMINE [Concomitant]
     Active Substance: MEGLUMINE
     Route: 042
  717. MEGLUMINE [Concomitant]
     Active Substance: MEGLUMINE
  718. ZINC [Concomitant]
     Active Substance: ZINC
     Indication: Rheumatoid arthritis
  719. TOPAMAX [Concomitant]
     Active Substance: TOPIRAMATE
     Indication: Migraine
     Route: 048
  720. TOPAMAX [Concomitant]
     Active Substance: TOPIRAMATE
     Route: 048
  721. TOPAMAX [Concomitant]
     Active Substance: TOPIRAMATE
  722. TOPAMAX [Concomitant]
     Active Substance: TOPIRAMATE
     Route: 048
  723. TOPAMAX [Concomitant]
     Active Substance: TOPIRAMATE
     Route: 048
  724. ERENUMAB-AOOE [Concomitant]
     Active Substance: ERENUMAB-AOOE
     Indication: Migraine
  725. ERENUMAB-AOOE [Concomitant]
     Active Substance: ERENUMAB-AOOE
     Indication: Rheumatoid arthritis
  726. DIETARY SUPPLEMENT\HERBALS [Concomitant]
     Active Substance: DIETARY SUPPLEMENT\HERBALS
     Indication: Product used for unknown indication
  727. IBUPROFEN [Concomitant]
     Active Substance: IBUPROFEN
     Indication: Product used for unknown indication
  728. PANTOPRAZOLE [Concomitant]
     Active Substance: PANTOPRAZOLE
     Indication: Product used for unknown indication
  729. PIROXICAM [Concomitant]
     Active Substance: PIROXICAM
     Indication: Product used for unknown indication
  730. PREDNISONE [Concomitant]
     Active Substance: PREDNISONE
     Indication: Rheumatoid arthritis
     Route: 048
  731. PANTOPRAZOLE SODIUM ANHYDROUS [Concomitant]
     Active Substance: PANTOPRAZOLE SODIUM ANHYDROUS
     Indication: Product used for unknown indication
  732. PANTOPRAZOLE SODIUM ANHYDROUS [Concomitant]
     Active Substance: PANTOPRAZOLE SODIUM ANHYDROUS
  733. PANTOPRAZOLE SODIUM ANHYDROUS [Concomitant]
     Active Substance: PANTOPRAZOLE SODIUM ANHYDROUS
  734. PANTOPRAZOLE SODIUM ANHYDROUS [Concomitant]
     Active Substance: PANTOPRAZOLE SODIUM ANHYDROUS
  735. PANTOPRAZOLE SODIUM ANHYDROUS [Concomitant]
     Active Substance: PANTOPRAZOLE SODIUM ANHYDROUS
  736. PANTOPRAZOLE SODIUM ANHYDROUS [Concomitant]
     Active Substance: PANTOPRAZOLE SODIUM ANHYDROUS
  737. PANTOPRAZOLE SODIUM ANHYDROUS [Concomitant]
     Active Substance: PANTOPRAZOLE SODIUM ANHYDROUS
  738. PANTOPRAZOLE SODIUM ANHYDROUS [Concomitant]
     Active Substance: PANTOPRAZOLE SODIUM ANHYDROUS
  739. PANTOPRAZOLE SODIUM ANHYDROUS [Concomitant]
     Active Substance: PANTOPRAZOLE SODIUM ANHYDROUS
  740. CAFFEINE [Concomitant]
     Active Substance: CAFFEINE
     Indication: Product used for unknown indication
  741. CAFFEINE CITRATE [Concomitant]
     Active Substance: CAFFEINE CITRATE
     Indication: Product used for unknown indication
  742. DOCONEXENT [Concomitant]
     Active Substance: DOCONEXENT
     Indication: Product used for unknown indication
  743. ICOSAPENT [Concomitant]
     Active Substance: ICOSAPENT
     Indication: Product used for unknown indication
  744. ELBASVIR [Concomitant]
     Active Substance: ELBASVIR
     Indication: Product used for unknown indication
  745. HYRIMOZ [Concomitant]
     Active Substance: ADALIMUMAB-ADAZ
     Indication: Rheumatoid arthritis
     Route: 048
  746. VITAMIN A AND D [ERGOCALCIFEROL;RETINOL] [Concomitant]
     Indication: Product used for unknown indication
  747. HYDROCORTISONE ACETATE [Concomitant]
     Active Substance: HYDROCORTISONE ACETATE
     Indication: Product used for unknown indication
  748. NICOTINAMIDE [Concomitant]
     Active Substance: NIACINAMIDE
     Indication: Product used for unknown indication
  749. BETAMETHASONE [Concomitant]
     Active Substance: BETAMETHASONE
     Indication: Product used for unknown indication
  750. BETAMETHASONE [Concomitant]
     Active Substance: BETAMETHASONE
  751. BUPRENORPHINE [Concomitant]
     Active Substance: BUPRENORPHINE
     Indication: Product used for unknown indication
  752. CELECOXIB [Concomitant]
     Active Substance: CELECOXIB
     Indication: Product used for unknown indication
  753. CELECOXIB [Concomitant]
     Active Substance: CELECOXIB
  754. CELECOXIB [Concomitant]
     Active Substance: CELECOXIB
  755. CELECOXIB [Concomitant]
     Active Substance: CELECOXIB
  756. CYCLOBENZAPRINE [Concomitant]
     Active Substance: CYCLOBENZAPRINE
     Indication: Product used for unknown indication
  757. CYCLOBENZAPRINE [Concomitant]
     Active Substance: CYCLOBENZAPRINE
  758. DICLOFENAC [Concomitant]
     Active Substance: DICLOFENAC
     Indication: Product used for unknown indication
  759. DOMPERIDONE [Concomitant]
     Active Substance: DOMPERIDONE
     Indication: Product used for unknown indication
  760. FINACEA [Concomitant]
     Active Substance: AZELAIC ACID
     Indication: Product used for unknown indication
  761. FLUTICASONE [Concomitant]
     Active Substance: FLUTICASONE
     Indication: Product used for unknown indication
  762. HYDROMORPHONE [Concomitant]
     Active Substance: HYDROMORPHONE
     Indication: Rheumatoid arthritis
  763. LAMOTRIGINE [Concomitant]
     Active Substance: LAMOTRIGINE
     Indication: Product used for unknown indication
     Route: 048
  764. LAMOTRIGINE [Concomitant]
     Active Substance: LAMOTRIGINE
     Route: 048
  765. LAMOTRIGINE [Concomitant]
     Active Substance: LAMOTRIGINE
  766. LAMOTRIGINE [Concomitant]
     Active Substance: LAMOTRIGINE
  767. LAMOTRIGINE [Concomitant]
     Active Substance: LAMOTRIGINE
     Route: 048
  768. LAMOTRIGINE [Concomitant]
     Active Substance: LAMOTRIGINE
  769. LEVOMILNACIPRAN [Concomitant]
     Active Substance: LEVOMILNACIPRAN
     Indication: Product used for unknown indication
  770. PHOSPHORUS [Concomitant]
     Active Substance: PHOSPHORUS
  771. TRAZODONE [Concomitant]
     Active Substance: TRAZODONE HYDROCHLORIDE
     Indication: Product used for unknown indication
  772. TRAZODONE [Concomitant]
     Active Substance: TRAZODONE HYDROCHLORIDE
  773. TRETINOIN [Concomitant]
     Active Substance: TRETINOIN
     Indication: Product used for unknown indication
  774. TRETINOIN [Concomitant]
     Active Substance: TRETINOIN
  775. DEXTROMETHORPHAN [Concomitant]
     Active Substance: DEXTROMETHORPHAN
     Indication: Product used for unknown indication
  776. ETANERCEPT [Concomitant]
     Active Substance: ETANERCEPT
     Indication: Rheumatoid arthritis
  777. METHOTREXATE SODIUM [Concomitant]
     Active Substance: METHOTREXATE SODIUM
     Indication: Rheumatoid arthritis
     Route: 048
  778. METHOTREXATE SODIUM [Concomitant]
     Active Substance: METHOTREXATE SODIUM
  779. METHOTREXATE SODIUM [Concomitant]
     Active Substance: METHOTREXATE SODIUM
     Route: 048
  780. METHOTREXATE SODIUM [Concomitant]
     Active Substance: METHOTREXATE SODIUM
  781. FLUTICASONE FUROATE [Concomitant]
     Active Substance: FLUTICASONE FUROATE
     Indication: Product used for unknown indication
     Dosage: METERED DOSE SPRAY
  782. AZELAIC ACID [Concomitant]
     Active Substance: AZELAIC ACID
     Indication: Product used for unknown indication
     Dosage: METERED DOSE SPRAY
  783. AZELAIC ACID [Concomitant]
     Active Substance: AZELAIC ACID
     Route: 005
  784. BETAMETHASONE VALERATE [Concomitant]
     Active Substance: BETAMETHASONE VALERATE
     Indication: Product used for unknown indication
  785. BETAMETHASONE VALERATE [Concomitant]
     Active Substance: BETAMETHASONE VALERATE
  786. BOTOX [Concomitant]
     Active Substance: ONABOTULINUMTOXINA
     Indication: Migraine
     Dosage: POWDER FOR SOLUTION
     Route: 030
  787. CALCIUM PANTOTHENATE [Concomitant]
     Active Substance: CALCIUM PANTOTHENATE
     Indication: Product used for unknown indication
  788. TRICHOLINE CITRATE [Concomitant]
     Active Substance: TRICHOLINE CITRATE
     Indication: Product used for unknown indication
  789. FETZIMA [Concomitant]
     Active Substance: LEVOMILNACIPRAN HYDROCHLORIDE
     Indication: Product used for unknown indication
  790. FETZIMA [Concomitant]
     Active Substance: LEVOMILNACIPRAN HYDROCHLORIDE
  791. FLUTICASONE FUROATE [Concomitant]
     Active Substance: FLUTICASONE FUROATE
     Indication: Product used for unknown indication
  792. MILNACIPRAN HYDROCHLORIDE [Concomitant]
     Active Substance: MILNACIPRAN HYDROCHLORIDE
     Indication: Product used for unknown indication
  793. MILNACIPRAN HYDROCHLORIDE [Concomitant]
     Active Substance: MILNACIPRAN HYDROCHLORIDE
  794. PAROXETINE [Concomitant]
     Active Substance: PAROXETINE
     Indication: Product used for unknown indication
  795. PAROXETINE HYDROCHLORIDE [Concomitant]
     Active Substance: PAROXETINE HYDROCHLORIDE
     Indication: Product used for unknown indication
  796. PREDNICARBATE [Concomitant]
     Active Substance: PREDNICARBATE
     Indication: Product used for unknown indication
  797. CHLORAPREP [Concomitant]
     Active Substance: CHLORHEXIDINE GLUCONATE\ISOPROPYL ALCOHOL
     Indication: Product used for unknown indication
     Route: 061
  798. CHLORHEXIDINE [Concomitant]
     Active Substance: CHLORHEXIDINE
     Indication: Product used for unknown indication
     Route: 002
  799. CLIOQUINOL\FLUMETHASONE [Concomitant]
     Active Substance: CLIOQUINOL\FLUMETHASONE
     Indication: Product used for unknown indication
     Route: 058
  800. LYRICA [Concomitant]
     Active Substance: PREGABALIN
     Indication: Product used for unknown indication
  801. NEOMYCIN [Concomitant]
     Active Substance: NEOMYCIN
     Indication: Product used for unknown indication
  802. PREGABALIN [Concomitant]
     Active Substance: PREGABALIN
     Indication: Product used for unknown indication
  803. PSEUDOEPHEDRINE HYDROCHLORIDE [Concomitant]
     Active Substance: PSEUDOEPHEDRINE HYDROCHLORIDE
     Indication: Product used for unknown indication
  804. PSEUDOEPHEDRINE HYDROCHLORIDE [Concomitant]
     Active Substance: PSEUDOEPHEDRINE HYDROCHLORIDE
  805. PSEUDOEPHEDRINE HYDROCHLORIDE [Concomitant]
     Active Substance: PSEUDOEPHEDRINE HYDROCHLORIDE
  806. DIETARY SUPPLEMENT\MINERALS\VITAMINS [Concomitant]
     Active Substance: DIETARY SUPPLEMENT\MINERALS\VITAMINS
     Indication: Product used for unknown indication
     Dosage: 400 UNIT
  807. BUTALBITAL AND ACETAMINOPHEN [Concomitant]
     Active Substance: ACETAMINOPHEN\BUTALBITAL
     Indication: Product used for unknown indication
  808. BUTALBITAL AND ACETAMINOPHEN [Concomitant]
     Active Substance: ACETAMINOPHEN\BUTALBITAL
     Route: 048
  809. APREPITANT [Concomitant]
     Active Substance: APREPITANT
     Indication: Product used for unknown indication
  810. OXYCODONE AND ACETAMINOPHEN [Concomitant]
     Active Substance: ACETAMINOPHEN\OXYCODONE HYDROCHLORIDE
     Indication: Product used for unknown indication
  811. OXYCODONE AND ACETAMINOPHEN [Concomitant]
     Active Substance: ACETAMINOPHEN\OXYCODONE HYDROCHLORIDE
  812. TRAMADOL HYDROCHLORIDE AND ACETAMINOPHEN [Concomitant]
     Active Substance: ACETAMINOPHEN\TRAMADOL HYDROCHLORIDE
     Indication: Product used for unknown indication
  813. RINVOQ [Concomitant]
     Active Substance: UPADACITINIB
     Indication: Product used for unknown indication

REACTIONS (1)
  - Death [Fatal]
